FAERS Safety Report 5386891-9 (Version None)
Quarter: 2007Q3

REPORT INFORMATION
  Report Type: 
  Country: None (occurrence: None)
  Receive Date: 20070713
  Receipt Date: 20070710
  Transmission Date: 20080115
  Serious: Yes (Other)
  Sender: FDA-Public Use
  Company Number: BD-SHR-BD-2007-024460

PATIENT
  Age: 56 Year
  Sex: Female

DRUGS (2)
  1. ULTRAVIST 300 [Suspect]
     Dosage: 50 + 100 ML
     Route: 042
     Dates: start: 20070430, end: 20070430
  2. OTHER ANTI-ASTHMATICS, INHALANTS [Concomitant]
     Indication: ASTHMA

REACTIONS (1)
  - ANAPHYLACTIC SHOCK [None]
